FAERS Safety Report 20148266 (Version 11)
Quarter: 2022Q3

REPORT INFORMATION
  Report Type: Spontaneous
  Country: CA (occurrence: CA)
  Receive Date: 20211204
  Receipt Date: 20220715
  Transmission Date: 20221026
  Serious: Yes (Other)
  Sender: FDA-Public Use
  Company Number: CA-CELLTRION INC.-2021CA016467

PATIENT

DRUGS (11)
  1. INFLECTRA [Suspect]
     Active Substance: INFLIXIMAB-DYYB
     Indication: Crohn^s disease
     Dosage: 1305 MG (15 MG/KG ) EVERY 4 WEEK
     Route: 042
     Dates: start: 20210927, end: 20220623
  2. INFLECTRA [Suspect]
     Active Substance: INFLIXIMAB-DYYB
     Dosage: 1305 MG (15 MG/KG ) EVERY 4 WEEK
     Route: 042
     Dates: start: 20211027
  3. INFLECTRA [Suspect]
     Active Substance: INFLIXIMAB-DYYB
     Dosage: 1305 MG (15 MG/KG ) EVERY 4 WEEK
     Route: 042
     Dates: start: 20211124
  4. INFLECTRA [Suspect]
     Active Substance: INFLIXIMAB-DYYB
     Dosage: 1305 MG (15 MG/KG ) EVERY 4 WEEK
     Route: 042
     Dates: start: 20211202
  5. INFLECTRA [Suspect]
     Active Substance: INFLIXIMAB-DYYB
     Dosage: 1305 MG (15 MG/KG ) EVERY 4 WEEK
     Route: 042
     Dates: start: 20220104
  6. INFLECTRA [Suspect]
     Active Substance: INFLIXIMAB-DYYB
     Dosage: 15 MG/KG EVERY 4 WEEK
     Route: 042
     Dates: start: 20220202
  7. INFLECTRA [Suspect]
     Active Substance: INFLIXIMAB-DYYB
     Dosage: 15 MG/KG EVERY 4 WEEK
     Route: 042
     Dates: start: 20220303, end: 20220303
  8. INFLECTRA [Suspect]
     Active Substance: INFLIXIMAB-DYYB
     Dosage: 15 MG/KG EVERY 4 WEEK
     Route: 042
     Dates: start: 20220331
  9. INFLECTRA [Suspect]
     Active Substance: INFLIXIMAB-DYYB
     Dosage: 15 MG/KG EVERY 4 WEEK
     Route: 042
     Dates: start: 20220428
  10. INFLECTRA [Suspect]
     Active Substance: INFLIXIMAB-DYYB
     Dosage: 15 MG/KG EVERY 4 WEEK
     Route: 042
     Dates: start: 20220526
  11. INFLECTRA [Suspect]
     Active Substance: INFLIXIMAB-DYYB
     Dosage: 15 MG/KG EVERY 4 WEEK, (DISCONTINUED - LACK OF EFFICIENCY)
     Route: 042
     Dates: start: 20220623

REACTIONS (22)
  - Thrombosis [Unknown]
  - Therapeutic response shortened [Unknown]
  - Drug ineffective [Unknown]
  - Off label use [Unknown]
  - Off label use [Unknown]
  - Off label use [Unknown]
  - Intentional product use issue [Unknown]
  - Fatigue [Recovered/Resolved]
  - Erythema [Not Recovered/Not Resolved]
  - Oedema [Not Recovered/Not Resolved]
  - Pain [Not Recovered/Not Resolved]
  - Phlebitis superficial [Recovering/Resolving]
  - Feeling hot [Not Recovered/Not Resolved]
  - Arthralgia [Unknown]
  - Condition aggravated [Recovered/Resolved]
  - COVID-19 [Recovered/Resolved]
  - Condition aggravated [Recovering/Resolving]
  - Abdominal pain [Unknown]
  - Serum ferritin decreased [Unknown]
  - Fatigue [Unknown]
  - Pain [Unknown]
  - Synovial cyst [Unknown]

NARRATIVE: CASE EVENT DATE: 20210901
